FAERS Safety Report 9887429 (Version 1)
Quarter: 2014Q1

REPORT INFORMATION
  Report Type: Spontaneous
  Country: US (occurrence: US)
  Receive Date: 20140211
  Receipt Date: 20140211
  Transmission Date: 20141002
  Serious: Yes (Hospitalization)
  Sender: FDA-Public Use
  Company Number: US-JNJFOC-20140117508

PATIENT
  Age: 55 Year
  Sex: Female
  Weight: 105.24 kg

DRUGS (27)
  1. TYLENOL SINUS [Suspect]
     Indication: SEASONAL ALLERGY
  2. RITUXIMAB [Suspect]
     Indication: RHEUMATOID ARTHRITIS
     Route: 042
     Dates: start: 20130304, end: 20130731
  3. ADVIL [Concomitant]
     Indication: ARTHRALGIA
     Route: 048
     Dates: start: 20130121
  4. CALTRATE 600 + D [Concomitant]
     Indication: NUTRITIONAL SUPPLEMENTATION
     Route: 048
     Dates: start: 2009
  5. CHANTIX [Concomitant]
     Indication: SMOKING CESSATION THERAPY
     Route: 048
     Dates: start: 20130114
  6. CITALOPRAM [Concomitant]
     Indication: DEPRESSION
     Route: 048
     Dates: start: 2010
  7. FERROUS SULFATE [Concomitant]
     Indication: NUTRITIONAL SUPPLEMENTATION
     Route: 048
     Dates: start: 2011
  8. FISH OIL [Concomitant]
     Indication: NUTRITIONAL SUPPLEMENTATION
     Route: 048
     Dates: start: 2009
  9. FOLIC ACID [Concomitant]
     Indication: NUTRITIONAL SUPPLEMENTATION
     Route: 048
     Dates: start: 2009
  10. GABAPENTIN [Concomitant]
     Indication: NEUROPATHY PERIPHERAL
     Route: 048
     Dates: start: 2010
  11. LAMICTAL [Concomitant]
     Indication: DEPRESSION
     Route: 048
     Dates: start: 2010
  12. LASIX [Concomitant]
     Indication: PRODUCT USED FOR UNKNOWN INDICATION
     Route: 048
     Dates: start: 20130314
  13. LEVOTHYROXINE [Concomitant]
     Indication: HYPOTHYROIDISM
     Route: 048
     Dates: start: 2009
  14. LORTAB [Concomitant]
     Indication: ARTHRALGIA
     Route: 048
     Dates: start: 20130103
  15. MEDROL [Concomitant]
     Indication: RHEUMATOID ARTHRITIS
     Route: 048
     Dates: start: 201111
  16. MEDROL DOSE PACK [Concomitant]
     Indication: RHEUMATOID ARTHRITIS
     Dosage: AS DIRECTED
     Route: 048
     Dates: start: 20130611, end: 20130617
  17. MTX [Concomitant]
     Indication: RHEUMATOID ARTHRITIS
     Route: 058
     Dates: start: 2010
  18. OLANZAPINE [Concomitant]
     Indication: DEPRESSION
     Route: 048
     Dates: start: 2010
  19. PERPHENAZINE [Concomitant]
     Indication: PSYCHOTIC DISORDER
     Route: 048
     Dates: start: 2009, end: 20130204
  20. POTASSIUM [Concomitant]
     Indication: NUTRITIONAL SUPPLEMENTATION
     Route: 048
     Dates: start: 20140104
  21. PREDNISONE [Concomitant]
     Indication: RHEUMATOID ARTHRITIS
     Route: 030
     Dates: start: 20130610, end: 20130610
  22. TRAZODONE [Concomitant]
     Indication: INSOMNIA
     Route: 048
     Dates: start: 2009
  23. VITAMIN B12 [Concomitant]
     Indication: NUTRITIONAL SUPPLEMENTATION
     Route: 065
     Dates: start: 2009
  24. VITAMIN C [Concomitant]
     Indication: NUTRITIONAL SUPPLEMENTATION
     Route: 048
     Dates: start: 2009
  25. VITAMINE E [Concomitant]
     Indication: NUTRITIONAL SUPPLEMENTATION
     Route: 048
     Dates: start: 2009
  26. VISTARIL [Concomitant]
     Indication: ARTHRALGIA
     Route: 048
     Dates: start: 2010, end: 20131001
  27. XANAX [Concomitant]
     Indication: ANXIETY
     Route: 048
     Dates: start: 2010

REACTIONS (1)
  - Pneumonia [Recovered/Resolved]
